FAERS Safety Report 16424384 (Version 2)
Quarter: 2019Q3

REPORT INFORMATION
  Report Type: Spontaneous
  Country: FR (occurrence: FR)
  Receive Date: 20190613
  Receipt Date: 20190717
  Transmission Date: 20191004
  Serious: Yes (Other)
  Sender: FDA-Public Use
  Company Number: FR-ACCORD-132549

PATIENT
  Age: 27 Year
  Sex: Female
  Weight: 104 kg

DRUGS (20)
  1. SANDIMMUN [Suspect]
     Active Substance: CYCLOSPORINE
     Indication: STEM CELL TRANSPLANT
     Route: 042
     Dates: start: 20190327
  2. MAGNE B6 [Suspect]
     Active Substance: MAGNESIUM\PYRIDOXINE
     Indication: MAGNESIUM DEFICIENCY
     Route: 048
     Dates: start: 20190404, end: 20190413
  3. OXYNORM [Suspect]
     Active Substance: OXYCODONE HYDROCHLORIDE
     Indication: ANALGESIC THERAPY
     Dosage: STRENGTH 50 MG / ML
     Route: 042
     Dates: start: 20190327, end: 20190408
  4. ZARZIO [Suspect]
     Active Substance: FILGRASTIM
     Indication: STEM CELL TRANSPLANT
     Route: 042
     Dates: start: 20190330
  5. VALACYCLOVIR [Suspect]
     Active Substance: VALACYCLOVIR HYDROCHLORIDE
     Indication: PROPHYLAXIS
     Dosage: STRENGTH: 500 MG
     Route: 048
     Dates: start: 20190315
  6. VANCOMYCIN SANDOZ [Suspect]
     Active Substance: VANCOMYCIN
     Indication: SEPSIS
     Dosage: STRENGTH: 500 MG
     Route: 042
     Dates: start: 20190404, end: 20190409
  7. ONDANSETRON ACCORD [Suspect]
     Active Substance: ONDANSETRON
     Indication: NAUSEA
     Route: 042
     Dates: start: 20190405, end: 20190413
  8. HYDROXYZINE ARROW [Suspect]
     Active Substance: HYDROXYZINE HYDROCHLORIDE
     Indication: ANXIETY
     Route: 048
     Dates: start: 20190407, end: 20190407
  9. ZERBAXA [Suspect]
     Active Substance: CEFTOLOZANE SULFATE\TAZOBACTAM SODIUM
     Indication: SEPSIS
     Route: 042
     Dates: start: 20190406
  10. SULFARLEM [Suspect]
     Active Substance: ANETHOLTRITHION
     Indication: PRODUCT USED FOR UNKNOWN INDICATION
     Dosage: PYRIDOXINE, VITAMINE B1
     Route: 048
     Dates: start: 20190407, end: 20190413
  11. CELLCEPT [Suspect]
     Active Substance: MYCOPHENOLATE MOFETIL\MYCOPHENOLATE MOFETIL HYDROCHLORIDE
     Indication: STEM CELL TRANSPLANT
     Route: 048
     Dates: start: 20190405
  12. VFEND [Suspect]
     Active Substance: VORICONAZOLE
     Indication: PROPHYLAXIS
     Dosage: STRENGTH:200 MG
     Route: 048
     Dates: start: 20190314
  13. AZYTER [Suspect]
     Active Substance: AZITHROMYCIN ANHYDROUS
     Indication: CONJUNCTIVITIS
     Route: 047
     Dates: start: 20190406, end: 20190409
  14. FUROSEMIDE RENAUDIN [Suspect]
     Active Substance: FUROSEMIDE
     Indication: OEDEMA
     Dosage: STRENGTH: 20 MG / 2 ML
     Route: 042
     Dates: start: 20190407, end: 20190408
  15. TRANXEN [Suspect]
     Active Substance: CLORAZEPATE DIPOTASSIUM
     Indication: ANXIETY
     Dosage: STRENGTH: 5 MG
     Route: 048
     Dates: start: 20190327, end: 20190405
  16. REFRESH CELLUVISC [Suspect]
     Active Substance: CARBOXYMETHYLCELLULOSE SODIUM
     Indication: DRY EYE
     Route: 047
     Dates: start: 20190406, end: 20190408
  17. DIFICLIR [Suspect]
     Active Substance: FIDAXOMICIN
     Indication: CLOSTRIDIUM DIFFICILE COLITIS
     Dosage: STRENGTH: 200 MG
     Route: 048
     Dates: start: 20190318, end: 20190416
  18. SMECTA [Suspect]
     Active Substance: MONTMORILLONITE
     Indication: DIARRHOEA
     Dosage: STRENGTH: 3 G  ORANGE-VANILLA,  SACHET
     Route: 048
     Dates: start: 20190318, end: 20190410
  19. PANTOPRAZOLE SODIUM. [Suspect]
     Active Substance: PANTOPRAZOLE SODIUM
     Indication: PRODUCT USED FOR UNKNOWN INDICATION
     Dosage: STRENGTH: 40 MG
     Route: 041
     Dates: start: 20190327, end: 20190416
  20. ALPRAZOLAM MYLAN [Suspect]
     Active Substance: ALPRAZOLAM
     Indication: ANXIETY
     Dosage: STRENGTH:0.25 MG, SCORED TABLET
     Route: 048
     Dates: start: 20190330, end: 20190408

REACTIONS (1)
  - Encephalopathy [Recovered/Resolved]

NARRATIVE: CASE EVENT DATE: 20190408
